FAERS Safety Report 5860026-8 (Version None)
Quarter: 2008Q3

REPORT INFORMATION
  Report Type: 
  Country: None (occurrence: None)
  Receive Date: 20080827
  Receipt Date: 20080812
  Transmission Date: 20090109
  Serious: Yes (Hospitalization)
  Sender: FDA-Public Use
  Company Number: JP-PFIZER INC-2008069840

PATIENT
  Age: 74 Year
  Sex: Male

DRUGS (1)
  1. MIGLITOL TABLET [Suspect]
     Indication: TYPE 2 DIABETES MELLITUS
     Dosage: DAILY DOSE:150MG
     Route: 048

REACTIONS (1)
  - BLOOD CREATININE INCREASED [None]
